FAERS Safety Report 6260802-6 (Version None)
Quarter: 2009Q3

REPORT INFORMATION
  Report Type: 
  Country: None (occurrence: None)
  Receive Date: 20090706
  Receipt Date: 20090619
  Transmission Date: 20100115
  Serious: Yes (Hospitalization)
  Sender: FDA-Public Use
  Company Number: 8048090

PATIENT
  Sex: Male

DRUGS (1)
  1. CIMZIA [Suspect]
     Indication: CROHN'S DISEASE
     Dosage: SC
     Route: 058
     Dates: start: 20090201

REACTIONS (5)
  - ANAPHYLACTIC SHOCK [None]
  - CELLULITIS [None]
  - NASOPHARYNGITIS [None]
  - PNEUMONIA [None]
  - RHEUMATOID ARTHRITIS [None]
